FAERS Safety Report 7123447-1 (Version None)
Quarter: 2010Q4

REPORT INFORMATION
  Report Type: 
  Country: None (occurrence: None)
  Receive Date: 20101125
  Receipt Date: 20101119
  Transmission Date: 20110411
  Serious: No
  Sender: FDA-Public Use
  Company Number: US-BIOGENIDEC-2010BI041307

PATIENT
  Age: 28 Year
  Sex: Female

DRUGS (5)
  1. TYSABRI [Suspect]
     Indication: MULTIPLE SCLEROSIS
     Route: 042
     Dates: start: 20100914
  2. AVONEX [Concomitant]
     Indication: MULTIPLE SCLEROSIS
     Route: 030
  3. AVONEX [Concomitant]
     Route: 030
     Dates: start: 20090612, end: 20100519
  4. AVONEX [Concomitant]
     Route: 030
     Dates: start: 20070601
  5. AVONEX [Concomitant]
     Route: 030
     Dates: start: 20050901, end: 20051101

REACTIONS (2)
  - ARTHRALGIA [None]
  - NIGHTMARE [None]
